FAERS Safety Report 15962333 (Version 3)
Quarter: 2019Q2

REPORT INFORMATION
  Report Type: Spontaneous
  Country: US (occurrence: US)
  Receive Date: 20190214
  Receipt Date: 20190509
  Transmission Date: 20190711
  Serious: Yes (Other)
  Sender: FDA-Public Use
  Company Number: US-DERMIRA, INC.-US-2019DER000059

PATIENT

DRUGS (1)
  1. QBREXZA [Suspect]
     Active Substance: GLYCOPYRRONIUM TOSYLATE
     Indication: PRODUCT USED FOR UNKNOWN INDICATION
     Dosage: ONE PAD ON BOTH AXILLAE TWO TO THREE TIMES A WEEK
     Route: 061
     Dates: start: 201811, end: 20190123

REACTIONS (5)
  - Eye pain [Recovered/Resolved]
  - Mydriasis [Recovered/Resolved]
  - Product use issue [Recovered/Resolved]
  - Headache [Recovered/Resolved]
  - Vision blurred [Recovered/Resolved]

NARRATIVE: CASE EVENT DATE: 201811
